FAERS Safety Report 5000802-7 (Version None)
Quarter: 2006Q2

REPORT INFORMATION
  Report Type: 
  Country: None (occurrence: None)
  Receive Date: 20060512
  Receipt Date: 20051013
  Transmission Date: 20061013
  Serious: Yes (Hospitalization)
  Sender: FDA-Public Use
  Company Number: US-MERCK-0510USA07533

PATIENT
  Age: 51 Year
  Sex: Male
  Weight: 109 kg

DRUGS (5)
  1. VIOXX [Suspect]
     Indication: ARTHRALGIA
     Route: 048
     Dates: start: 20020101, end: 20040930
  2. VIOXX [Suspect]
     Route: 048
     Dates: start: 20020101, end: 20040930
  3. VIOXX [Suspect]
     Indication: SWELLING
     Route: 048
     Dates: start: 20020101, end: 20040930
  4. VIOXX [Suspect]
     Route: 048
     Dates: start: 20020101, end: 20040930
  5. ASPIRIN [Concomitant]
     Route: 065

REACTIONS (2)
  - CORONARY ARTERY OCCLUSION [None]
  - PRESCRIBED OVERDOSE [None]
